FAERS Safety Report 13134112 (Version 1)
Quarter: 2017Q1

REPORT INFORMATION
  Report Type: Spontaneous
  Country: AU (occurrence: AU)
  Receive Date: 20170120
  Receipt Date: 20170120
  Transmission Date: 20170428
  Serious: Yes (Other)
  Sender: FDA-Public Use
  Company Number: AU-NOVOPROD-527228

PATIENT
  Age: 57 Year
  Sex: Female
  Weight: 104 kg

DRUGS (4)
  1. SERETIDE [Concomitant]
     Active Substance: FLUTICASONE PROPIONATE\SALMETEROL XINAFOATE
     Indication: ASTHMA
     Dosage: 2 PUFF, BID
     Route: 055
     Dates: start: 2000
  2. METFORMIN [Concomitant]
     Active Substance: METFORMIN HYDROCHLORIDE
     Dosage: 500 MG, TID
     Route: 048
     Dates: start: 2001
  3. SAXENDA [Suspect]
     Active Substance: LIRAGLUTIDE
     Indication: WEIGHT CONTROL
     Dosage: 1.20 MG, QD
     Route: 058
     Dates: start: 20161118, end: 201612
  4. SALBUTAMOL [Concomitant]
     Active Substance: ALBUTEROL
     Indication: ASTHMA
     Dosage: 2 PUFF
     Route: 055
     Dates: start: 2000

REACTIONS (4)
  - Hepatic cancer [Unknown]
  - Abdominal pain upper [Unknown]
  - Adenocarcinoma pancreas [Unknown]
  - Nausea [Unknown]
